FAERS Safety Report 5508092-3 (Version None)
Quarter: 2007Q4

REPORT INFORMATION
  Report Type: 
  Country: None (occurrence: None)
  Receive Date: 20071106
  Receipt Date: 20071026
  Transmission Date: 20080405
  Serious: Yes (Other)
  Sender: FDA-Public Use
  Company Number: US-SHR-US-2007-039016

PATIENT
  Age: 45 Year
  Sex: Female
  Weight: 45.805 kg

DRUGS (8)
  1. BETASERON [Suspect]
     Indication: SECONDARY PROGRESSIVE MULTIPLE SCLEROSIS
     Dosage: 8 MIU, EVERY 2D
     Route: 058
     Dates: start: 20040101
  2. FLEXERIL [Concomitant]
  3. NEURONTIN [Concomitant]
  4. CORTICOSTEROIDS [Concomitant]
     Dates: start: 20070901
  5. PROZAC [Concomitant]
     Indication: DEPRESSION
     Dosage: 40 MG, 1X/DAY
  6. AVELOX [Concomitant]
     Indication: ABSCESS
     Dosage: 40 MG, 1X/DAY
     Dates: start: 20071025
  7. ALLEGRA [Concomitant]
     Indication: MULTIPLE ALLERGIES
     Dosage: 180 MG, UNK
  8. PROVIGIL [Concomitant]
     Indication: FATIGUE
     Dosage: 100 MG, 1X/DAY

REACTIONS (4)
  - HALLUCINATION [None]
  - INJECTION SITE ABSCESS [None]
  - MULTIPLE SCLEROSIS [None]
  - WRONG TECHNIQUE IN DRUG USAGE PROCESS [None]
